FAERS Safety Report 23255604 (Version 1)
Quarter: 2023Q4

REPORT INFORMATION
  Report Type: Spontaneous
  Country: US (occurrence: US)
  Receive Date: 20231203
  Receipt Date: 20231203
  Transmission Date: 20240109
  Serious: No
  Sender: FDA-Public Use
  Company Number: US-AVEO ONCOLOGY-2023-AVEO-US000835

PATIENT

DRUGS (6)
  1. FOTIVDA [Suspect]
     Active Substance: TIVOZANIB HYDROCHLORIDE
     Indication: Renal cell carcinoma
     Dosage: 1.34 MG, DAILY FOR 21 DAYS WITH 7 DAYS OFF (28-DAY CYCLE)
     Route: 048
     Dates: start: 20221121
  2. SELENIUM [Concomitant]
     Active Substance: SELENIUM
  3. SUPER ENZYME [Concomitant]
  4. GABAPENTIN [Concomitant]
     Active Substance: GABAPENTIN
  5. MEDROL [Concomitant]
     Active Substance: METHYLPREDNISOLONE
  6. AZELASTINE [Concomitant]
     Active Substance: AZELASTINE\AZELASTINE HYDROCHLORIDE

REACTIONS (2)
  - Dyspnoea [Unknown]
  - Feeling abnormal [Unknown]
